FAERS Safety Report 4758531-0 (Version None)
Quarter: 2005Q3

REPORT INFORMATION
  Report Type: 
  Country: None (occurrence: None)
  Receive Date: 20050829
  Receipt Date: 20050812
  Transmission Date: 20060218
  Serious: Yes (Death, Hospitalization)
  Sender: FDA-Public Use
  Company Number: WAES 0508NOR00010

PATIENT
  Age: 48 Year
  Sex: Female

DRUGS (4)
  1. VIOXX [Suspect]
     Indication: PAIN
     Dosage: 25 MG/DAILY
     Dates: start: 20030701, end: 20030801
  2. VIOXX [Suspect]
     Indication: PAIN
     Dosage: 25 MG/DAILY
     Dates: start: 20030925, end: 20031001
  3. VIOXX [Suspect]
     Indication: PAIN
     Dosage: 25 MG/DAILY
     Dates: start: 20031115, end: 20031121
  4. VIOXX [Suspect]
     Indication: PAIN
     Dosage: 25 MG/DAILY
     Dates: start: 20031229

REACTIONS (7)
  - CHEST PAIN [None]
  - CORONARY ARTERY ATHEROSCLEROSIS [None]
  - CORONARY ARTERY STENOSIS [None]
  - DEPRESSION [None]
  - MYOCARDIAL INFARCTION [None]
  - VENTRICULAR FIBRILLATION [None]
  - WEIGHT INCREASED [None]
